FAERS Safety Report 16121956 (Version 1)
Quarter: 2019Q2

REPORT INFORMATION
  Report Type: Spontaneous
  Country: US (occurrence: US)
  Receive Date: 20190326
  Receipt Date: 20190326
  Transmission Date: 20190711
  Serious: No
  Sender: FDA-Public Use
  Company Number: None

PATIENT
  Age: 20 Month
  Sex: Male

DRUGS (10)
  1. SCALE ATRIPLEX MIX [Concomitant]
     Active Substance: ATRIPLEX CANESCENS POLLEN\ATRIPLEX LENTIFORMIS POLLEN\ATRIPLEX POLYCARPA POLLEN
  2. PULSE OXIMETER [Concomitant]
  3. OMEPRAZOLE. [Concomitant]
     Active Substance: OMEPRAZOLE
  4. SUCTION [Concomitant]
  5. CULTURELLE PROBIOTIS [Concomitant]
  6. FUROSEMIDE. [Suspect]
     Active Substance: FUROSEMIDE
     Indication: HEART DISEASE CONGENITAL
     Dosage: ?          QUANTITY:2 OUNCE(S);?
     Route: 048
     Dates: start: 20171127
  7. ASPIRIN. [Concomitant]
     Active Substance: ASPIRIN
  8. KEPPRA OXYGEN [Concomitant]
  9. ROVATIO [Concomitant]
  10. RANITIDINE. [Concomitant]
     Active Substance: RANITIDINE

REACTIONS (2)
  - Product dropper issue [None]
  - Product container issue [None]

NARRATIVE: CASE EVENT DATE: 20190326
